FAERS Safety Report 23038004 (Version 1)
Quarter: 2023Q4

REPORT INFORMATION
  Report Type: Other
  Country: None (occurrence: ES)
  Receive Date: 20231006
  Receipt Date: 20231006
  Transmission Date: 20240109
  Serious: Yes (Life-Threatening)
  Sender: FDA-Public Use
  Company Number: ES-B.Braun Medical Inc.-2146777

PATIENT
  Sex: Female

DRUGS (2)
  1. MAGNESIUM SULFATE IN DEXTROSE [Suspect]
     Active Substance: MAGNESIUM SULFATE
     Indication: Pre-eclampsia
  2. LABETALOL [Suspect]
     Active Substance: LABETALOL\LABETALOL HYDROCHLORIDE

REACTIONS (4)
  - Tracheal stenosis [None]
  - Excessive dynamic airway collapse [None]
  - Acute respiratory failure [None]
  - Maternal exposure during pregnancy [None]
